FAERS Safety Report 9554222 (Version 1)
Quarter: 2013Q3

REPORT INFORMATION
  Report Type: Spontaneous
  Country: US (occurrence: None)
  Receive Date: 20130815
  Receipt Date: 20130815
  Transmission Date: 20140515
  Serious: Yes (Other)
  Sender: FDA-Public Use
  Company Number: 1640922

PATIENT
  Age: 50 Year
  Sex: Male

DRUGS (4)
  1. LEUCOVORIN CALCIUM [Suspect]
     Indication: COLORECTAL CANCER METASTATIC
     Dosage: 1 CYCLICAL, INTRAVENOUS
     Route: 041
  2. IRINOTECAN HYDROCHLORIDE [Suspect]
     Indication: COLORECTAL CANCER METASTATIC
     Dosage: 1 CYCLICAL, INTRAVENOUS DRIP?
     Route: 041
  3. FLUOROURACIL [Suspect]
     Indication: COLORECTAL CANCER METASTATIC
     Dosage: 1 CYCLICAL INTRAVENOUS DRIP?
     Route: 041
  4. OTHER CHEMOTHERAPEUTICS [Suspect]
     Indication: COLORECTAL CANCER METASTATIC
     Dosage: 1 CYCLICAL, INTRAVENOUS DRIP?
     Route: 041

REACTIONS (1)
  - Hypersensitivity [None]
